FAERS Safety Report 6917443-4 (Version None)
Quarter: 2010Q3

REPORT INFORMATION
  Report Type: 
  Country: None (occurrence: None)
  Receive Date: 20100810
  Receipt Date: 20100803
  Transmission Date: 20110219
  Serious: Yes (Hospitalization)
  Sender: FDA-Public Use
  Company Number: PHHO2010US11714

PATIENT
  Age: 49 Year
  Sex: Male

DRUGS (3)
  1. AFINITOR [Suspect]
     Indication: HEAD AND NECK CANCER
     Dosage: UNKNOWN
     Route: 048
     Dates: start: 20100621
  2. CISPLATIN [Concomitant]
  3. RADIOTHERAPY [Concomitant]

REACTIONS (2)
  - ORAL PAIN [None]
  - OROPHARYNGEAL PAIN [None]
